FAERS Safety Report 7715374-3 (Version None)
Quarter: 2011Q3

REPORT INFORMATION
  Report Type: 
  Country: None (occurrence: None)
  Receive Date: 20110829
  Receipt Date: 20110815
  Transmission Date: 20111222
  Serious: Yes (Hospitalization, Other)
  Sender: FDA-Public Use
  Company Number: US-ELI_LILLY_AND_COMPANY-US201106001368

PATIENT
  Sex: Female
  Weight: 59 kg

DRUGS (7)
  1. CELEXA [Concomitant]
  2. ADVAIR DISKUS 100/50 [Concomitant]
  3. NEXIUM [Concomitant]
  4. XANAX [Concomitant]
  5. TAMOXIFEN CITRATE [Concomitant]
     Dosage: 20 MG, QOD
  6. SPIRIVA [Concomitant]
  7. FORTEO [Suspect]
     Indication: OSTEOPOROSIS
     Dosage: 20 UG, QD
     Route: 058

REACTIONS (4)
  - BREAST HYPERPLASIA [None]
  - BREAST CALCIFICATIONS [None]
  - METASTASES TO LYMPH NODES [None]
  - BREAST CANCER [None]
